FAERS Safety Report 6146213-2 (Version None)
Quarter: 2009Q2

REPORT INFORMATION
  Report Type: 
  Country: None (occurrence: None)
  Receive Date: 20090407
  Receipt Date: 20090403
  Transmission Date: 20091009
  Serious: Yes (Death, Hospitalization, Other)
  Sender: FDA-Public Use
  Company Number: PHHY2009NL12630

PATIENT
  Age: 60 Year
  Sex: Male

DRUGS (2)
  1. DICLOFENAC [Suspect]
     Indication: ABDOMINAL PAIN
  2. OMEPRAZOLE [Concomitant]
     Indication: ABDOMINAL PAIN

REACTIONS (9)
  - BRADYCARDIA [None]
  - CONTUSION [None]
  - GASTROINTESTINAL SOUNDS ABNORMAL [None]
  - HYPOTENSION [None]
  - LUNG INFECTION [None]
  - METASTASES TO LYMPH NODES [None]
  - NEUTROPENIC SEPSIS [None]
  - PNEUMONIA STREPTOCOCCAL [None]
  - PULMONARY OEDEMA [None]
